FAERS Safety Report 4704404-9 (Version None)
Quarter: 2005Q2

REPORT INFORMATION
  Report Type: 
  Country: None (occurrence: None)
  Receive Date: 20050630
  Receipt Date: 20050609
  Transmission Date: 20051028
  Serious: Yes (Hospitalization)
  Sender: FDA-Public Use
  Company Number: AU-GLAXOSMITHKLINE-B0384528A

PATIENT
  Age: 60 Year
  Sex: Male

DRUGS (6)
  1. AVANDIA [Suspect]
     Indication: DRUG USE FOR UNKNOWN INDICATION
     Dosage: 8MG SEE DOSAGE TEXT
     Route: 048
     Dates: start: 20040301, end: 20040901
  2. QUINAPRIL HCL [Concomitant]
  3. METFORMIN HCL [Concomitant]
  4. FLUOXETINE [Concomitant]
  5. PIOGLITAZONE HCL [Concomitant]
  6. INSULIN [Concomitant]

REACTIONS (3)
  - DRUG ADMINISTRATION ERROR [None]
  - HALLUCINATION [None]
  - WEIGHT INCREASED [None]
